FAERS Safety Report 23338102 (Version 2)
Quarter: 2023Q4

REPORT INFORMATION
  Report Type: Report from Study
  Country: PE (occurrence: PE)
  Receive Date: 20231226
  Receipt Date: 20231228
  Transmission Date: 20240109
  Serious: Yes (Other)
  Sender: FDA-Public Use
  Company Number: PE-002147023-NVSC2023PE080515

PATIENT
  Age: 46 Year
  Sex: Female

DRUGS (3)
  1. KISQALI [Suspect]
     Active Substance: RIBOCICLIB
     Indication: Breast cancer metastatic
     Dosage: 600 MG, QD
     Route: 048
     Dates: start: 20210802
  2. KISQALI [Suspect]
     Active Substance: RIBOCICLIB
     Indication: Metastasis
  3. LETROZOLE [Suspect]
     Active Substance: LETROZOLE
     Indication: Product used for unknown indication
     Dosage: UNK
     Route: 065

REACTIONS (15)
  - Neutropenia [Unknown]
  - Herpes virus infection [Unknown]
  - Nasal congestion [Unknown]
  - Hypersensitivity [Unknown]
  - Hypoacusis [Unknown]
  - Pain in extremity [Unknown]
  - Blister [Unknown]
  - Crying [Unknown]
  - Fear [Unknown]
  - Palpitations [Unknown]
  - Tachycardia [Unknown]
  - Breast pain [Unknown]
  - White blood cell count decreased [Unknown]
  - Haemoglobin decreased [Unknown]
  - Fatigue [Unknown]

NARRATIVE: CASE EVENT DATE: 20210801
